FAERS Safety Report 8576936-7 (Version None)
Quarter: 2012Q3

REPORT INFORMATION
  Report Type: 
  Country: None (occurrence: None)
  Receive Date: 20120807
  Receipt Date: 20120112
  Transmission Date: 20120928
  Serious: Yes (Other)
  Sender: FDA-Public Use
  Company Number: US-ROCHE-1096769

PATIENT
  Sex: Female
  Weight: 52.2 kg

DRUGS (16)
  1. CLARITIN [Concomitant]
  2. FLONASE [Concomitant]
  3. MEDROL [Concomitant]
  4. PREDNISONE [Concomitant]
  5. ALAVERT [Concomitant]
  6. XOLAIR [Suspect]
     Indication: ASTHMA
  7. BENADRYL [Concomitant]
  8. ASTELIN [Concomitant]
  9. ZYRTEC [Concomitant]
  10. NASONEX [Concomitant]
  11. ZYRTEC-D 12 HOUR [Concomitant]
  12. CLARINEX [Concomitant]
  13. AFRIN [Concomitant]
  14. CLARITIN-D [Concomitant]
  15. FLUTICASONE PROPIONATE [Concomitant]
  16. CLARINEX-D [Concomitant]

REACTIONS (11)
  - URTICARIA [None]
  - RHINITIS [None]
  - RASH [None]
  - DYSPNOEA [None]
  - SINUS HEADACHE [None]
  - UNEVALUABLE EVENT [None]
  - COUGH [None]
  - HYPERSENSITIVITY [None]
  - WHEEZING [None]
  - SINUSITIS [None]
  - PRURITUS [None]
